FAERS Safety Report 5905532-2 (Version None)
Quarter: 2008Q4

REPORT INFORMATION
  Report Type: 
  Country: None (occurrence: None)
  Receive Date: 20081001
  Receipt Date: 20081001
  Transmission Date: 20090506
  Serious: No
  Sender: FDA-Public Use
  Company Number: None

PATIENT
  Age: 80 Year
  Sex: Male

DRUGS (2)
  1. METHADONE HCL [Suspect]
     Indication: PAIN
     Dosage: 10 MG TID PO
     Route: 048
     Dates: start: 20080501
  2. METHADONE HCL [Suspect]
     Indication: SOMNOLENCE
     Dosage: 10 MG TID PO
     Route: 048
     Dates: start: 20080501

REACTIONS (1)
  - MENTAL STATUS CHANGES [None]
